FAERS Safety Report 6443339-0 (Version None)
Quarter: 2009Q4

REPORT INFORMATION
  Report Type: 
  Country: None (occurrence: None)
  Receive Date: 20091117
  Receipt Date: 20091107
  Transmission Date: 20100525
  Serious: Yes (Other)
  Sender: FDA-Public Use
  Company Number: BR-ABBOTT-08P-020-0437828-00

PATIENT
  Sex: Male
  Weight: 57 kg

DRUGS (9)
  1. HUMIRA [Suspect]
     Indication: ANKYLOSING SPONDYLITIS
     Route: 058
     Dates: start: 20071120, end: 20080122
  2. PYRAZINAMIDE [Suspect]
     Indication: LYMPH NODE TUBERCULOSIS
     Route: 048
     Dates: start: 20080129
  3. ISONIAZID W/RIFAMPICIN [Suspect]
     Indication: LYMPH NODE TUBERCULOSIS
     Route: 048
     Dates: start: 20080129
  4. SULFASALAZINE [Concomitant]
     Indication: ANKYLOSING SPONDYLITIS
     Dates: start: 20030101
  5. NIMESULIDE [Concomitant]
     Indication: ANKYLOSING SPONDYLITIS
  6. CALCIUM CARBONATE [Concomitant]
     Indication: ANKYLOSING SPONDYLITIS
  7. OMEPRAZOLE [Concomitant]
     Indication: ULCER
     Route: 048
     Dates: start: 20020101, end: 20080107
  8. OMEPRAZOLE [Concomitant]
  9. NON-STEROIDAL ANTI-INFLAMMATORY [Concomitant]
     Indication: DRUG USE FOR UNKNOWN INDICATION

REACTIONS (22)
  - ABDOMINAL PAIN UPPER [None]
  - BLOOD TEST ABNORMAL [None]
  - CHILLS [None]
  - DYSPHAGIA [None]
  - FATIGUE [None]
  - FEELING HOT [None]
  - GRANULOMA [None]
  - LOCALISED OEDEMA [None]
  - LYMPHADENOPATHY [None]
  - MALAISE [None]
  - NAUSEA [None]
  - NECROSIS [None]
  - OEDEMA [None]
  - ORAL DISORDER [None]
  - PAIN [None]
  - PHARYNGEAL LESION [None]
  - PSEUDARTHROSIS [None]
  - PYREXIA [None]
  - TUBERCULOSIS [None]
  - UNEVALUABLE EVENT [None]
  - URINE ANALYSIS ABNORMAL [None]
  - WHITE BLOOD CELL COUNT ABNORMAL [None]
